FAERS Safety Report 21516664 (Version 1)
Quarter: 2022Q4

REPORT INFORMATION
  Report Type: Spontaneous
  Country: US (occurrence: None)
  Receive Date: 20221027
  Receipt Date: 20221027
  Transmission Date: 20230112
  Serious: No
  Sender: FDA-Public Use
  Company Number: None

PATIENT
  Age: 59 Year
  Sex: Male
  Weight: 72.26 kg

DRUGS (12)
  1. CAPECITABINE [Suspect]
     Active Substance: CAPECITABINE
     Indication: Pancreatic carcinoma
     Dosage: FREQUENCY : TWICE A DAY;?
     Route: 048
     Dates: end: 20221018
  2. AZITHROMYCIN [Concomitant]
  3. CELEXA [Concomitant]
  4. COLACE [Concomitant]
  5. LISINOPRIL [Concomitant]
  6. MORPHINE SULFATE [Concomitant]
  7. OMEPRAZOLE [Concomitant]
  8. ONDANSETRON [Concomitant]
  9. SODIUM CHLORIDE [Concomitant]
  10. VENTOLIN HFA [Concomitant]
  11. XARELTO [Concomitant]
  12. ZOFRAN [Concomitant]

REACTIONS (4)
  - Hepatic enzyme increased [None]
  - Therapy interrupted [None]
  - Device occlusion [None]
  - Pancreatic disorder [None]
